FAERS Safety Report 8500433-8 (Version None)
Quarter: 2012Q3

REPORT INFORMATION
  Report Type: 
  Country: None (occurrence: None)
  Receive Date: 20120710
  Receipt Date: 20120703
  Transmission Date: 20120928
  Serious: Yes (Other)
  Sender: FDA-Public Use
  Company Number: US-GLAXOSMITHKLINE-A0983221A

PATIENT
  Age: 17 Year
  Sex: Female

DRUGS (3)
  1. ADVAIR DISKUS 100/50 [Suspect]
     Indication: ASTHMA
     Dosage: 1PUFF TWICE PER DAY
     Route: 055
     Dates: start: 20120401
  2. CLARITIN [Concomitant]
  3. PROAIR HFA [Concomitant]

REACTIONS (2)
  - ASTHMA [None]
  - OROPHARYNGEAL PAIN [None]
